FAERS Safety Report 18973098 (Version 1)
Quarter: 2021Q1

REPORT INFORMATION
  Report Type: Spontaneous
  Country: SE (occurrence: SE)
  Receive Date: 20210305
  Receipt Date: 20210305
  Transmission Date: 20210420
  Serious: Yes (Hospitalization)
  Sender: FDA-Public Use
  Company Number: SE-TEVA-2021-SE-1886141

PATIENT
  Age: 78 Year
  Sex: Female

DRUGS (9)
  1. OXYCODONE [Suspect]
     Active Substance: OXYCODONE
     Dosage: 40MILLIGRAM
     Dates: start: 202006
  2. NAPROXEN. [Concomitant]
     Active Substance: NAPROXEN
  3. MIRTAZAPINE. [Concomitant]
     Active Substance: MIRTAZAPINE
     Dosage: 30MILLIGRAM
     Dates: start: 20171204
  4. MEZAVANT  1200 MG ENTERODEPOTTABLETT [Concomitant]
     Dosage: UNIT DOSE:2400MILLIGRAM
     Dates: start: 20171205
  5. OXYNORM 5 MG KAPSEL, HARD [Suspect]
     Active Substance: OXYCODONE HYDROCHLORIDE
     Dosage: 1 CAPSULE IF NEEDED 4 TIMES A DAY, MAXIMUM 4 CAPSULES PER DAY:UNIT DOSE:5MILLLIGRAM
     Dates: start: 20171204
  6. ZOPICLONE [Concomitant]
     Active Substance: ZOPICLONE
     Dosage: 1 TABLET IF NEEDED FOR THE NIGHT, MAXIMUM 1 TABLET PER DAY
     Dates: start: 20171204
  7. VOLTAREN 23,2 MG/G GEL [Concomitant]
     Dosage: 1 APPLICATION 3 TIMES DAILY
     Dates: start: 20190123
  8. OMEPRAZOLE. [Concomitant]
     Active Substance: OMEPRAZOLE
     Dosage: 20MILLIGRAM
     Dates: start: 20171205
  9. SERTRALINE [Concomitant]
     Active Substance: SERTRALINE HYDROCHLORIDE
     Dosage: 75MILLIGRAM
     Dates: start: 20180525

REACTIONS (4)
  - General physical health deterioration [Recovered/Resolved]
  - Asthenia [Recovered/Resolved]
  - Fatigue [Recovered/Resolved]
  - Accidental overdose [Recovered/Resolved]

NARRATIVE: CASE EVENT DATE: 202010
